FAERS Safety Report 9515655 (Version 1)
Quarter: 2013Q1

REPORT INFORMATION
  Report Type: Spontaneous
  Country: US (occurrence: None)
  Receive Date: 20130305
  Receipt Date: 20130305
  Transmission Date: 20140127
  Serious: Yes (Hospitalization)
  Sender: FDA-Public Use
  Company Number: 163-21880-12102914

PATIENT
  Age: 88 Year
  Sex: Female

DRUGS (6)
  1. REVLIMID [Suspect]
     Indication: MYELODYSPLASTIC SYNDROME
     Dosage: 10 MG,M 1 IN 1 D, PO
     Route: 048
     Dates: start: 20121003
  2. POTASSIUM CITRATE (POTASSIUM CITRATE) (UNKNOWN) [Concomitant]
  3. PANTOPRAZOLE SODIUM (PANTOPRAZOLE SODIUM) (UNKNOWN) [Concomitant]
  4. ATIVAN (LORAZEPAM) (UNKNOWN) [Concomitant]
  5. LEVOFLOXACIN (LEVOFLOXACIN) (UNKNOWN) [Concomitant]
  6. METAMUCIL (METAMUCIL ^PROCTER + GAMBLE^) (UNKNOWN) [Concomitant]

REACTIONS (2)
  - Diarrhoea [None]
  - Asthenia [None]
